FAERS Safety Report 24404713 (Version 1)
Quarter: 2024Q4

REPORT INFORMATION
  Report Type: Spontaneous
  Country: US (occurrence: US)
  Receive Date: 20241007
  Receipt Date: 20241007
  Transmission Date: 20250115
  Serious: Yes (Hospitalization)
  Sender: MYLAN
  Company Number: US-MYLANLABS-2024M1088165

PATIENT
  Age: 43 Year
  Sex: Female

DRUGS (2)
  1. DEXAMETHASONE [Suspect]
     Active Substance: DEXAMETHASONE
     Indication: Immune thrombocytopenia
     Dosage: 40 MILLIGRAM, QD
     Route: 065
  2. Immunoglobulin [Concomitant]
     Indication: Heavy menstrual bleeding
     Dosage: 1 MILLIGRAM/KILOGRAM (ON DAYS 2 AND 4 OF ADMISSION)
     Route: 042

REACTIONS (1)
  - Drug ineffective [Unknown]
